FAERS Safety Report 11878547 (Version 5)
Quarter: 2016Q2

REPORT INFORMATION
  Report Type: Report from Study
  Country: US (occurrence: US)
  Receive Date: 20151230
  Receipt Date: 20160517
  Transmission Date: 20160815
  Serious: No
  Sender: FDA-Public Use
  Company Number: US-AMGEN-USASP2015135953

PATIENT
  Age: 56 Year
  Sex: Male
  Weight: 198 kg

DRUGS (2)
  1. ENBREL [Suspect]
     Active Substance: ETANERCEPT
     Indication: OSTEOARTHRITIS
  2. ENBREL [Suspect]
     Active Substance: ETANERCEPT
     Indication: RHEUMATOID ARTHRITIS
     Dosage: 50 MG, WEEKLY
     Route: 065
     Dates: start: 20150814

REACTIONS (17)
  - Insomnia [Unknown]
  - Paraesthesia [Unknown]
  - Injection site pain [Not Recovered/Not Resolved]
  - Arthritis [Unknown]
  - Pain [Unknown]
  - Cough [Unknown]
  - Contusion [Unknown]
  - Nasopharyngitis [Unknown]
  - Injection site haemorrhage [Not Recovered/Not Resolved]
  - Muscle spasms [Unknown]
  - Stress [Unknown]
  - Fibromyalgia [Unknown]
  - Chills [Unknown]
  - Arthralgia [Unknown]
  - Injection site reaction [Not Recovered/Not Resolved]
  - Condition aggravated [Unknown]
  - Injection site pruritus [Unknown]

NARRATIVE: CASE EVENT DATE: 2015
